FAERS Safety Report 12001087 (Version 2)
Quarter: 2016Q2

REPORT INFORMATION
  Report Type: Spontaneous
  Country: PL (occurrence: PL)
  Receive Date: 20160204
  Receipt Date: 20160412
  Transmission Date: 20160815
  Serious: Yes (Other)
  Sender: FDA-Public Use
  Company Number: PL-TEVA-631224ISR

PATIENT
  Age: 64 Year
  Sex: Female

DRUGS (2)
  1. METFORMIN [Suspect]
     Active Substance: METFORMIN HYDROCHLORIDE
     Indication: DIABETES MELLITUS
     Dosage: 1700 MILLIGRAM DAILY;
  2. MIX OF HUMAN INSULIN 30/70 [Concomitant]
     Dosage: 10 IU (INTERNATIONAL UNIT) DAILY; 6 IU BEFORE BREAKFAST AND 4 IU BEFORE SUPPER

REACTIONS (1)
  - Renal impairment [Unknown]

NARRATIVE: CASE EVENT DATE: 201403
